FAERS Safety Report 8623512 (Version 4)
Quarter: 2014Q1

REPORT INFORMATION
  Report Type: Spontaneous
  Country: US (occurrence: US)
  Receive Date: 20120620
  Receipt Date: 20140127
  Transmission Date: 20141002
  Serious: Yes (Disabling)
  Sender: FDA-Public Use
  Company Number: US-ASTRAZENECA-2012SE36472

PATIENT
  Age: 63 Year
  Sex: Female
  Weight: 70.3 kg

DRUGS (13)
  1. NEXIUM [Suspect]
     Indication: GASTROOESOPHAGEAL REFLUX DISEASE
     Route: 048
     Dates: start: 200303, end: 201203
  2. NEXIUM [Suspect]
     Indication: GASTROOESOPHAGEAL REFLUX DISEASE
     Route: 048
     Dates: start: 20091218
  3. TUMS [Concomitant]
     Dosage: AS NEEDED
  4. VITAMINS [Concomitant]
  5. SYMBICORT [Concomitant]
     Indication: ASTHMA
     Dosage: 160/4.5 MCG, 2 PUFFS, BID
     Route: 055
     Dates: start: 20091029
  6. DEXILANT [Concomitant]
     Indication: GASTROOESOPHAGEAL REFLUX DISEASE
  7. FASOMAX [Concomitant]
     Indication: BONE DENSITY ABNORMAL
  8. NASONEX [Concomitant]
     Indication: SINUS DISORDER
     Dosage: INT 2 SQUIRTS INTO EACH NOSTRIL QAM
     Route: 045
     Dates: start: 20091029
  9. AMOLORIDE HCTZ [Concomitant]
     Dosage: 5 MG-50 MG
     Dates: start: 2008
  10. PREVACID [Concomitant]
     Dates: start: 2008
  11. GABAPENTIN [Concomitant]
     Route: 048
     Dates: start: 20101029
  12. BENZONATATE [Concomitant]
     Indication: COUGH
     Route: 048
     Dates: start: 20110114
  13. PREDNISONE [Concomitant]
     Dosage: TK 3 TS PO D FOR 3 DAYS, THEN TK 2 TS D FOR 3 DAYS UPTO
     Route: 048
     Dates: start: 20090918

REACTIONS (8)
  - Cervical vertebral fracture [Unknown]
  - Osteoarthritis [Unknown]
  - Back pain [Unknown]
  - Calcium deficiency [Unknown]
  - Arthritis [Unknown]
  - Osteoporosis [Unknown]
  - Bone density decreased [Unknown]
  - Arthralgia [Unknown]
